FAERS Safety Report 9304836 (Version 2)
Quarter: 2013Q2

REPORT INFORMATION
  Report Type: Spontaneous
  Country: GB (occurrence: GB)
  Receive Date: 20130523
  Receipt Date: 20130618
  Transmission Date: 20140414
  Serious: Yes (Hospitalization, Other)
  Sender: FDA-Public Use
  Company Number: GB-ROCHE-1227968

PATIENT
  Sex: Male

DRUGS (6)
  1. LUCENTIS [Suspect]
     Indication: AGE-RELATED MACULAR DEGENERATION
     Dosage: FORM STRENGTH: 10MG/ML.
     Route: 050
     Dates: start: 20130309
  2. ALLOPURINOL [Concomitant]
     Route: 065
  3. CARVEDILOL [Concomitant]
     Route: 065
  4. WARFARIN [Concomitant]
  5. ONDANSETRON [Concomitant]
  6. DIGOXIN [Concomitant]

REACTIONS (1)
  - Cardiac arrest [Recovered/Resolved]
